FAERS Safety Report 9838270 (Version 3)
Quarter: 2014Q4

REPORT INFORMATION
  Report Type: Spontaneous
  Country: US (occurrence: None)
  Receive Date: 20131205
  Receipt Date: 20141205
  Transmission Date: 20150529
  Serious: No
  Sender: FDA-Public Use
  Company Number: 163-POMAL-13100804

PATIENT
  Age: 71 Year
  Sex: Male
  Weight: 94.53 kg

DRUGS (16)
  1. CALCIUM + VITAMIN D (LEKOVIT CA) [Concomitant]
     Active Substance: CALCIUM\VITAMIN D
  2. TRILEPTAL [Concomitant]
     Active Substance: OXCARBAZEPINE
  3. POMALYST [Suspect]
     Active Substance: POMALIDOMIDE
     Indication: PLASMA CELL MYELOMA
     Dosage: 1 IN 1 D
     Route: 048
     Dates: start: 20130617, end: 20130622
  4. ALFUZOSIN HCL (ALFUZOSIN HYDROCHLORIDE) [Concomitant]
  5. IRON [Concomitant]
     Active Substance: IRON
  6. PENCILLIN V POTASSIUM (PHENOXYMETHYLPENICILLIN POTASSIUM) [Concomitant]
  7. SEROQUEL [Concomitant]
     Active Substance: QUETIAPINE FUMARATE
  8. FLUDROCORTISONE ACETATE. [Concomitant]
     Active Substance: FLUDROCORTISONE ACETATE
  9. LEVOTHYROXINE SODIUM. [Concomitant]
     Active Substance: LEVOTHYROXINE SODIUM
  10. OXYCODONE HCL (OXYCODONE HYDROCHLORIDE) [Concomitant]
  11. ASPIRIN (ACETYLSALICYLIC ACID) [Concomitant]
     Active Substance: ASPIRIN
  12. CELEBREX (CELEOXIB) [Concomitant]
  13. MULTIVITAMINS [Concomitant]
     Active Substance: VITAMINS
  14. SIMVASTATIN. [Concomitant]
     Active Substance: SIMVASTATIN
  15. DEXAMETHASONE. [Concomitant]
     Active Substance: DEXAMETHASONE
  16. ABILIFY [Concomitant]
     Active Substance: ARIPIPRAZOLE

REACTIONS (2)
  - Performance status decreased [None]
  - Skin exfoliation [None]

NARRATIVE: CASE EVENT DATE: 2013
